FAERS Safety Report 9437405 (Version 1)
Quarter: 2013Q3

REPORT INFORMATION
  Report Type: Spontaneous
  Country: IT (occurrence: IT)
  Receive Date: 20130802
  Receipt Date: 20130802
  Transmission Date: 20140515
  Serious: Yes (Hospitalization)
  Sender: FDA-Public Use
  Company Number: IT-009507513-1307ITA015559

PATIENT
  Sex: Female

DRUGS (4)
  1. REBETOL [Suspect]
     Indication: HEPATITIS C
     Dosage: 1000 MG DAILY
     Route: 048
     Dates: start: 201211, end: 201301
  2. REBETOL [Suspect]
     Dosage: 800 MG DAILY
     Route: 048
     Dates: start: 201301, end: 20130624
  3. PEGINTERFERON ALFA-2B [Suspect]
     Indication: HEPATITIS C
     Dosage: WEEKLY
     Dates: start: 201211, end: 20130624
  4. VICTRELIS [Suspect]
     Indication: HEPATITIS C
     Dosage: DAILY DOSAGE UNKNOWN
     Route: 048
     Dates: start: 201212, end: 20130624

REACTIONS (3)
  - Menorrhagia [Unknown]
  - Haemoglobin decreased [Unknown]
  - Haemoglobin decreased [Recovering/Resolving]
